FAERS Safety Report 25228381 (Version 2)
Quarter: 2025Q2

REPORT INFORMATION
  Report Type: Spontaneous
  Country: GB (occurrence: GB)
  Receive Date: 20250423
  Receipt Date: 20250429
  Transmission Date: 20250717
  Serious: No
  Sender: ORGANON
  Company Number: None

PATIENT
  Age: 72 Year
  Sex: Male
  Weight: 76 kg

DRUGS (5)
  1. FINASTERIDE [Suspect]
     Active Substance: FINASTERIDE
     Indication: Prostatomegaly
  2. BISOPROLOL [Concomitant]
     Active Substance: BISOPROLOL
     Indication: Adverse drug reaction
  3. TAMSULOSIN [Concomitant]
     Active Substance: TAMSULOSIN
  4. ATORVASTATIN [Concomitant]
     Active Substance: ATORVASTATIN
  5. APIXABAN [Concomitant]
     Active Substance: APIXABAN

REACTIONS (2)
  - Retrograde ejaculation [Not Recovered/Not Resolved]
  - Product prescribing error [Unknown]

NARRATIVE: CASE EVENT DATE: 20220401
